FAERS Safety Report 16165670 (Version 2)
Quarter: 2019Q2

REPORT INFORMATION
  Report Type: Spontaneous
  Country: BE (occurrence: BE)
  Receive Date: 20190405
  Receipt Date: 20190506
  Transmission Date: 20190711
  Serious: Yes (Other)
  Sender: FDA-Public Use
  Company Number: PHHY2019BE076446

PATIENT
  Age: 61 Year
  Sex: Male

DRUGS (2)
  1. RYDAPT [Suspect]
     Active Substance: MIDOSTAURIN
     Indication: ACUTE MYELOID LEUKAEMIA
     Dosage: 25 MG, UNK
     Route: 065
  2. RYDAPT [Suspect]
     Active Substance: MIDOSTAURIN
     Dosage: 50 MG, BID
     Route: 065
     Dates: start: 20190326, end: 20190401

REACTIONS (12)
  - Mitral valve incompetence [Unknown]
  - Left ventricular dilatation [Unknown]
  - Right atrial dilatation [Unknown]
  - Left ventricular hypertrophy [Unknown]
  - Pulmonary arterial pressure increased [Unknown]
  - Akinesia [Unknown]
  - Ventricular hypokinesia [Unknown]
  - Pericarditis [Unknown]
  - Tricuspid valve incompetence [Unknown]
  - Left ventricular dysfunction [Unknown]
  - Ejection fraction decreased [Unknown]
  - Left atrial dilatation [Unknown]

NARRATIVE: CASE EVENT DATE: 20190331
